FAERS Safety Report 5363699-1 (Version None)
Quarter: 2007Q2

REPORT INFORMATION
  Report Type: 
  Country: None (occurrence: None)
  Receive Date: 20070620
  Receipt Date: 20070619
  Transmission Date: 20071010
  Serious: Yes (Hospitalization)
  Sender: FDA-Public Use
  Company Number: TW-BRISTOL-MYERS SQUIBB COMPANY-13819180

PATIENT
  Age: 52 Year
  Sex: Female
  Weight: 59 kg

DRUGS (11)
  1. CISPLATIN [Suspect]
     Indication: SQUAMOUS CELL CARCINOMA OF THE CERVIX
     Route: 042
     Dates: start: 20070529, end: 20070529
  2. IRINOTECAN HCL [Suspect]
     Indication: SQUAMOUS CELL CARCINOMA OF THE CERVIX
     Route: 042
     Dates: start: 20070529, end: 20070529
  3. FLUDIAZEPAM [Concomitant]
     Route: 048
     Dates: start: 20070518, end: 20070526
  4. FUROSEMIDE [Concomitant]
     Route: 048
     Dates: start: 20070518, end: 20070526
  5. BISACODYL [Concomitant]
     Route: 048
     Dates: start: 20070518, end: 20070526
  6. DEXAMETHASONE 0.5MG TAB [Concomitant]
     Route: 048
     Dates: start: 20070518, end: 20070526
  7. COUGH MEDICATION [Concomitant]
     Route: 048
     Dates: start: 20070518, end: 20070526
  8. BENZONATATE [Concomitant]
     Route: 048
     Dates: start: 20070518, end: 20070526
  9. PROCHLORPERAZINE [Concomitant]
     Route: 048
     Dates: start: 20070530, end: 20070603
  10. LORAZEPAM [Concomitant]
     Route: 048
     Dates: start: 20070520, end: 20070603
  11. MAGNESIUM OXIDE [Concomitant]
     Route: 048
     Dates: start: 20070530, end: 20070603

REACTIONS (5)
  - DYSURIA [None]
  - LEUKOPENIA [None]
  - MOUTH ULCERATION [None]
  - NEUTROPENIA [None]
  - PYREXIA [None]
